FAERS Safety Report 5870259-2 (Version None)
Quarter: 2008Q3

REPORT INFORMATION
  Report Type: 
  Country: None (occurrence: None)
  Receive Date: 20080904
  Receipt Date: 20070906
  Transmission Date: 20090109
  Serious: No
  Sender: FDA-Public Use
  Company Number: US-BRISTOL-MYERS SQUIBB COMPANY-13870894

PATIENT
  Age: 19 Year
  Sex: Male

DRUGS (3)
  1. DEFINITY [Suspect]
     Indication: ECHOCARDIOGRAM
     Route: 042
     Dates: start: 20070807, end: 20070807
  2. IBUPROFEN [Concomitant]
     Route: 048
  3. LOPRESSOR [Concomitant]

REACTIONS (1)
  - DYSPHAGIA [None]
